FAERS Safety Report 5241086-4 (Version None)
Quarter: 2007Q1

REPORT INFORMATION
  Report Type: 
  Country: None (occurrence: None)
  Receive Date: 20070214
  Receipt Date: 20070214
  Transmission Date: 20070707
  Serious: Yes (Hospitalization)
  Sender: FDA-Public Use
  Company Number: None

PATIENT
  Age: 41 Year
  Sex: Female
  Weight: 81.6475 kg

DRUGS (1)
  1. ACYCLOVIR [Suspect]
     Indication: ORAL HERPES
     Dosage: 400 MILLIGRAMS EVERY 8 HOURS IV
     Route: 042
     Dates: start: 20061225, end: 20061228

REACTIONS (1)
  - RENAL FAILURE ACUTE [None]
